FAERS Safety Report 11856749 (Version 2)
Quarter: 2020Q4

REPORT INFORMATION
  Report Type: Spontaneous
  Country: US (occurrence: US)
  Receive Date: 20151221
  Receipt Date: 20201028
  Transmission Date: 20210113
  Serious: No
  Sender: FDA-Public Use
  Company Number: US-CELGENEUS-USA-2015120926

PATIENT
  Age: 70 Year
  Sex: Female

DRUGS (1)
  1. POMALYST [Suspect]
     Active Substance: POMALIDOMIDE
     Indication: PLASMA CELL MYELOMA
     Dosage: 4 MILLIGRAM
     Route: 048
     Dates: start: 20151118

REACTIONS (7)
  - Pruritus [Recovered/Resolved]
  - Pain [Recovered/Resolved]
  - Blood glucose increased [Recovered/Resolved]
  - Vision blurred [Recovered/Resolved]
  - Haemoglobin decreased [Recovered/Resolved]
  - Tinnitus [Recovered/Resolved]
  - Epistaxis [Recovered/Resolved]

NARRATIVE: CASE EVENT DATE: 20151118
